FAERS Safety Report 9077524 (Version 3)
Quarter: 2013Q3

REPORT INFORMATION
  Report Type: Spontaneous
  Country: CR (occurrence: CR)
  Receive Date: 20130130
  Receipt Date: 20130912
  Transmission Date: 20140515
  Serious: Yes (Other)
  Sender: FDA-Public Use
  Company Number: PHHY2013CR008168

PATIENT
  Sex: Male

DRUGS (1)
  1. EXJADE [Suspect]
     Indication: PAROXYSMAL NOCTURNAL HAEMOGLOBINURIA
     Dosage: UNK UKN, UNK

REACTIONS (1)
  - Stevens-Johnson syndrome [Unknown]
